FAERS Safety Report 8770217 (Version 1)
Quarter: 2012Q4

REPORT INFORMATION
  Report Type: 
  Country: US (occurrence: US)
  Receive Date: 20120906
  Receipt Date: 20120906
  Transmission Date: 20130627
  Serious: No
  Sender: FDA-Public Use
  Company Number: US-ASTRAZENECA-2012SE60888

PATIENT
  Age: 69 Year
  Sex: Male

DRUGS (3)
  1. SEROQUEL [Suspect]
     Indication: PARKINSON^S DISEASE
     Route: 048
  2. SEROQUEL [Suspect]
     Indication: DEMENTIA
     Route: 048
  3. SEROQUEL [Suspect]
     Indication: PSYCHOTIC DISORDER
     Route: 048

REACTIONS (3)
  - Blood disorder [Unknown]
  - Agitation [Unknown]
  - Off label use [Unknown]
